FAERS Safety Report 7580592-4 (Version None)
Quarter: 2011Q2

REPORT INFORMATION
  Report Type: 
  Country: None (occurrence: None)
  Receive Date: 20110629
  Receipt Date: 20110621
  Transmission Date: 20111010
  Serious: Yes (Hospitalization)
  Sender: FDA-Public Use
  Company Number: B0724640A

PATIENT
  Sex: Male

DRUGS (2)
  1. IFOSFAMIDE [Suspect]
     Route: 042
     Dates: start: 20110131
  2. PAZOPANIB [Suspect]
     Route: 048
     Dates: start: 20110124

REACTIONS (1)
  - FEBRILE NEUTROPENIA [None]
